FAERS Safety Report 6759528-1 (Version None)
Quarter: 2010Q2

REPORT INFORMATION
  Report Type: 
  Country: None (occurrence: None)
  Receive Date: 20100603
  Receipt Date: 20100514
  Transmission Date: 20101027
  Serious: Yes (Hospitalization)
  Sender: FDA-Public Use
  Company Number: JP-SOLVAY-00310001263

PATIENT
  Age: 28 Year
  Sex: Female

DRUGS (4)
  1. FLUVOXAMINE MALEATE [Suspect]
     Indication: ADJUSTMENT DISORDER
     Dosage: 175 MILLIGRAM(S) ORAL
     Route: 048
     Dates: start: 20070511, end: 20070511
  2. CHLORPROMAZINE HCL [Suspect]
     Indication: DRUG USE FOR UNKNOWN INDICATION
     Dosage: 87.5 MILLIGRAM(S) ORAL
     Route: 048
     Dates: start: 20070511, end: 20070511
  3. NITRAZEPAM [Suspect]
     Indication: DRUG USE FOR UNKNOWN INDICATION
     Dosage: 35 MILLIGRAM(S) ORAL
     Route: 048
     Dates: start: 20070511, end: 20070511
  4. BROMAZEPAM (BROMAZEPAM) [Suspect]
     Indication: DRUG USE FOR UNKNOWN INDICATION
     Dosage: 35 MILLIGRAM(S) ORAL
     Route: 048
     Dates: start: 20070511, end: 20070511

REACTIONS (2)
  - ALTERED STATE OF CONSCIOUSNESS [None]
  - INTENTIONAL OVERDOSE [None]
